FAERS Safety Report 19100490 (Version 1)
Quarter: 2021Q2

REPORT INFORMATION
  Report Type: Report from Study
  Country: FR (occurrence: FR)
  Receive Date: 20210407
  Receipt Date: 20210407
  Transmission Date: 20210717
  Serious: Yes (Hospitalization)
  Sender: FDA-Public Use
  Company Number: FR-ROCHE-2705575

PATIENT
  Age: 82 Year
  Sex: Female

DRUGS (6)
  1. CYCLOPHOSPHAMIDE. [Suspect]
     Active Substance: CYCLOPHOSPHAMIDE
     Indication: MANTLE CELL LYMPHOMA
     Dosage: ON DAY 1
     Route: 042
     Dates: start: 20180105, end: 20180603
  2. DOXORUBICIN [Suspect]
     Active Substance: DOXORUBICIN
     Indication: MANTLE CELL LYMPHOMA
     Dosage: ON DAY 1
     Route: 042
     Dates: start: 20180105, end: 20180603
  3. PREDNISONE. [Suspect]
     Active Substance: PREDNISONE
     Indication: MANTLE CELL LYMPHOMA
     Dosage: DAY 1?5
     Route: 048
     Dates: start: 20180103, end: 20180603
  4. VINCRISTINE [Suspect]
     Active Substance: VINCRISTINE
     Indication: MANTLE CELL LYMPHOMA
     Dosage: (2MG CAP) ON DAY 1
     Route: 042
     Dates: start: 20180103, end: 20180603
  5. RITUXIMAB. [Suspect]
     Active Substance: RITUXIMAB
     Indication: MANTLE CELL LYMPHOMA
     Dosage: ON DAY 1 AS PER PROTOCOL
     Route: 041
     Dates: start: 20180105, end: 20180530
  6. RITUXIMAB. [Suspect]
     Active Substance: RITUXIMAB
     Indication: MANTLE CELL LYMPHOMA
     Dosage: ADMINISTERED IN 8 WEEK CYCLES FOR 24 MONTHS. ON 04/FEB/2019 ADMINISTRED THE MOST RECENT DOSE OF RI
     Route: 058
     Dates: start: 20180813

REACTIONS (1)
  - Myelodysplastic syndrome [Not Recovered/Not Resolved]

NARRATIVE: CASE EVENT DATE: 20200622
